FAERS Safety Report 6502034-X (Version None)
Quarter: 2009Q4

REPORT INFORMATION
  Report Type: 
  Country: None (occurrence: None)
  Receive Date: 20091214
  Receipt Date: 20091202
  Transmission Date: 20100525
  Serious: Yes (Hospitalization, Other)
  Sender: FDA-Public Use
  Company Number: 450414

PATIENT
  Age: 77 Year
  Sex: Male

DRUGS (2)
  1. PHENYTOIN [Suspect]
     Indication: EPILEPSY
     Dosage: 350 MG
  2. CAPECITABINE [Suspect]
     Indication: COLON CANCER
     Dosage: SECOND CYCLE

REACTIONS (3)
  - DRUG LEVEL INCREASED [None]
  - NERVOUS SYSTEM DISORDER [None]
  - POTENTIATING DRUG INTERACTION [None]
